FAERS Safety Report 11551477 (Version 1)
Quarter: 2015Q3

REPORT INFORMATION
  Report Type: Spontaneous
  Country: US (occurrence: US)
  Receive Date: 20150903
  Receipt Date: 20150903
  Transmission Date: 20151125
  Serious: No
  Sender: FDA-Public Use
  Company Number: US-ELI_LILLY_AND_COMPANY-US201208005100

PATIENT
  Sex: Female

DRUGS (3)
  1. HUMALOG MIX75/25 [Suspect]
     Active Substance: INSULIN LISPRO
     Indication: DIABETES MELLITUS
     Dosage: 18 U, BID
  2. HUMALOG MIX75/25 [Suspect]
     Active Substance: INSULIN LISPRO
     Dosage: 14 U, EACH EVENING
  3. HUMALOG [Suspect]
     Active Substance: INSULIN LISPRO

REACTIONS (9)
  - Arthritis [Not Recovered/Not Resolved]
  - Drug dose omission [Recovered/Resolved]
  - Blood glucose decreased [Unknown]
  - Dizziness [Not Recovered/Not Resolved]
  - Intercepted product selection error [Unknown]
  - Memory impairment [Not Recovered/Not Resolved]
  - Tinnitus [Not Recovered/Not Resolved]
  - Diarrhoea [Not Recovered/Not Resolved]
  - Hypoacusis [Not Recovered/Not Resolved]
